FAERS Safety Report 24201417 (Version 1)
Quarter: 2024Q3

REPORT INFORMATION
  Report Type: Spontaneous
  Country: PL (occurrence: PL)
  Receive Date: 20240812
  Receipt Date: 20240812
  Transmission Date: 20241016
  Serious: Yes (Other)
  Sender: MYLAN
  Company Number: None

PATIENT
  Age: 52 Year
  Sex: Female

DRUGS (2)
  1. PAROXETINE [Suspect]
     Active Substance: PAROXETINE
     Indication: Product used for unknown indication
     Dosage: NO DATA ON DOSE
     Route: 048
     Dates: start: 20200428, end: 20200428
  2. ZOLPIDEM TARTRATE [Suspect]
     Active Substance: ZOLPIDEM TARTRATE
     Indication: Product used for unknown indication
     Dosage: 60 DOSAGE FORM
     Route: 048
     Dates: start: 20200428, end: 20200428

REACTIONS (4)
  - Toxicity to various agents [Recovered/Resolved]
  - Suicide attempt [Recovered/Resolved]
  - Coma [Recovered/Resolved]
  - Drug abuse [Unknown]

NARRATIVE: CASE EVENT DATE: 20200428
